FAERS Safety Report 17849776 (Version 3)
Quarter: 2020Q2

REPORT INFORMATION
  Report Type: Spontaneous
  Country: US (occurrence: US)
  Receive Date: 20200602
  Receipt Date: 20200615
  Transmission Date: 20200714
  Serious: No
  Sender: FDA-Public Use
  Company Number: US-PFIZER INC-2017222670

PATIENT
  Age: 76 Year
  Sex: Female
  Weight: 61.23 kg

DRUGS (21)
  1. TEMOVATE [Concomitant]
     Active Substance: CLOBETASOL PROPIONATE
     Dosage: UNK, AS NEEDED (APPLY THINLY AS NEEDED)
     Route: 061
     Dates: start: 20170216
  2. PEPCID [Concomitant]
     Active Substance: FAMOTIDINE
     Dosage: 20 MG, 2X/DAY
     Route: 048
     Dates: start: 20161122
  3. ATORVASTATIN [Concomitant]
     Active Substance: ATORVASTATIN
     Indication: BLOOD CHOLESTEROL INCREASED
     Dosage: 10 MG, UNK
  4. TYLENOL WITH CODEINE [Concomitant]
     Active Substance: ACETAMINOPHEN\CODEINE PHOSPHATE
     Indication: PAIN
     Dosage: UNK, AS NEEDED (300-30MG ORAL TABLET/ TAKE 1 TAB BY MOUTH EVERY 6 HOURS AS NEEDED FOR PAIN)
     Route: 048
     Dates: start: 20160913
  5. PREMARIN [Suspect]
     Active Substance: ESTROGENS, CONJUGATED
     Dosage: 0.3 MG, UNK [(QUANTITY FOR 90 DAYS: ONCE) (QUANTITY FOR 90 DAYS: 90 X AS MAINTENANCE DOSE)]
  6. XANAX [Concomitant]
     Active Substance: ALPRAZOLAM
     Indication: ANXIETY
     Dosage: 0.5 MG, AS NEEDED (TAKE 1 TAB (0.5 MG TOTAL) BY MOUTH AT BEDTIME AS NEEDED FOR ANXIETY)
     Route: 048
     Dates: start: 20160915
  7. ATARAX [Concomitant]
     Active Substance: HYDROXYZINE HYDROCHLORIDE
     Dosage: 10 MG, AS NEEDED (TAKE 10 MG BY MOUTH EVERY 8 HOURS AS NEEDED)
     Route: 048
  8. AMLODIPINE [Concomitant]
     Active Substance: AMLODIPINE BESYLATE
     Indication: HYPERTENSION
     Dosage: 10 MG, UNK
  9. PREMARIN [Suspect]
     Active Substance: ESTROGENS, CONJUGATED
     Indication: MENOPAUSAL SYMPTOMS
     Dosage: 0.625 MG, UNK (QUANTITY FOR 90 DAYS: 90 X 3 MOS. THEN DECREASED)
  10. NORVASC [Concomitant]
     Active Substance: AMLODIPINE BESYLATE
     Dosage: 10 MG, DAILY
     Route: 048
     Dates: start: 20170421
  11. KEFLEX [Concomitant]
     Active Substance: CEPHALEXIN
     Dosage: 500 MG, 2X/DAY
     Route: 048
     Dates: start: 20170303
  12. COZAAR [Concomitant]
     Active Substance: LOSARTAN POTASSIUM
     Dosage: 50 MG, DAILY
     Route: 048
     Dates: start: 20170109
  13. LIPITOR [Concomitant]
     Active Substance: ATORVASTATIN CALCIUM
     Dosage: 10 MG, DAILY
     Route: 048
     Dates: start: 20170213
  14. TEARS NATURALE II [DEXTRAN 70;HYPROMELLOSE] [Concomitant]
     Dosage: UNK, 3X/DAY (PLACE 1 DROP IN BOTH EYES THREE TIMES DAILY)
     Route: 047
     Dates: start: 20160908
  15. PREMARIN [Suspect]
     Active Substance: ESTROGENS, CONJUGATED
     Indication: HORMONE REPLACEMENT THERAPY
     Dosage: 1.25 MG, DAILY
     Route: 048
     Dates: start: 20170517
  16. PREMARIN [Suspect]
     Active Substance: ESTROGENS, CONJUGATED
     Indication: FEELING OF BODY TEMPERATURE CHANGE
     Dosage: 1.25 MG, 1X/DAY
     Route: 048
  17. ASPIRIN [ACETYLSALICYLIC ACID] [Concomitant]
     Active Substance: ASPIRIN
     Dosage: UNK
     Route: 048
  18. NEXIUM I.V. [Concomitant]
     Active Substance: ESOMEPRAZOLE SODIUM
     Dosage: 80 MG, UNK (TAKE 2 CAPS BY MOUTH AS DIRECTED)
     Route: 048
     Dates: start: 20131231
  19. NEURONTIN [Concomitant]
     Active Substance: GABAPENTIN
     Dosage: 100 MG, 3X/DAY
     Route: 048
     Dates: start: 20170123
  20. PREMARIN [Suspect]
     Active Substance: ESTROGENS, CONJUGATED
     Dosage: 0.45 MG, UNK  [(QUANTITY FOR 90 DAYS: ONCE) (QUANTITY FOR 90 DAYS: 90 X 6 MOS. THEN DECREASED)]
  21. TYLENOL EXTRA STRENGTH [Concomitant]
     Active Substance: ACETAMINOPHEN
     Dosage: UNK
     Route: 048

REACTIONS (2)
  - Back pain [Unknown]
  - Condition aggravated [Unknown]
